FAERS Safety Report 9750189 (Version 3)
Quarter: 2014Q2

REPORT INFORMATION
  Report Type: Spontaneous
  Country: US (occurrence: US)
  Receive Date: 20131212
  Receipt Date: 20140422
  Transmission Date: 20141212
  Serious: Yes (Hospitalization)
  Sender: FDA-Public Use
  Company Number: US-GLAXOSMITHKLINE-A1052473A

PATIENT
  Age: 54 Year
  Sex: Female

DRUGS (12)
  1. ADVAIR [Suspect]
     Indication: CHRONIC OBSTRUCTIVE PULMONARY DISEASE
     Dosage: 1PUFF TWICE PER DAY
     Route: 055
     Dates: start: 2008
  2. COREG CR [Suspect]
     Indication: CARDIAC FAILURE CONGESTIVE
     Dosage: 20MG PER DAY
     Route: 048
  3. PROAIR HFA [Concomitant]
  4. LASIX [Concomitant]
  5. LISINOPRIL [Concomitant]
  6. NEURONTIN [Concomitant]
  7. ROBAXIN [Concomitant]
  8. OXYCODONE [Concomitant]
  9. BABY ASPIRIN [Concomitant]
  10. OXYGEN [Concomitant]
  11. AMBIEN [Concomitant]
     Indication: SLEEP DISORDER
  12. XANAX [Concomitant]

REACTIONS (9)
  - Blindness [Unknown]
  - Pneumonia [Recovering/Resolving]
  - Intraocular melanoma [Recovering/Resolving]
  - Myocardial infarction [Recovering/Resolving]
  - Monoplegia [Recovering/Resolving]
  - Hypoxia [Recovering/Resolving]
  - Visual impairment [Recovering/Resolving]
  - Fall [Recovering/Resolving]
  - Underdose [Unknown]
